FAERS Safety Report 25943482 (Version 1)
Quarter: 2025Q4

REPORT INFORMATION
  Report Type: Spontaneous
  Country: US (occurrence: US)
  Receive Date: 20251021
  Receipt Date: 20251021
  Transmission Date: 20260118
  Serious: No
  Sender: CIPLA
  Company Number: US-CIPLA LTD.-2025US12754

PATIENT

DRUGS (2)
  1. TOPIRAMATE [Suspect]
     Active Substance: TOPIRAMATE
     Indication: Idiopathic intracranial hypertension
     Dosage: UNK (REGULAR USER)
     Route: 065
     Dates: start: 2023
  2. TOPIRAMATE [Suspect]
     Active Substance: TOPIRAMATE
     Dosage: UNK
     Route: 065
     Dates: start: 20251004

REACTIONS (7)
  - Off label use [Unknown]
  - Product taste abnormal [Unknown]
  - Product after taste [Unknown]
  - Product quality issue [Unknown]
  - Product odour abnormal [Unknown]
  - Paraesthesia oral [Unknown]
  - Hypoaesthesia oral [Unknown]

NARRATIVE: CASE EVENT DATE: 20230101
